FAERS Safety Report 21879626 (Version 14)
Quarter: 2023Q2

REPORT INFORMATION
  Report Type: Report from Study
  Country: TR (occurrence: None)
  Receive Date: 20230118
  Receipt Date: 20230626
  Transmission Date: 20230722
  Serious: Yes (Hospitalization)
  Sender: FDA-Public Use
  Company Number: TR-ROCHE-3265170

PATIENT
  Age: 49 Year
  Sex: Female
  Weight: 85 kg

DRUGS (9)
  1. ATEZOLIZUMAB [Suspect]
     Active Substance: ATEZOLIZUMAB
     Indication: HER2 positive breast cancer
     Dosage: ON 30/DEC/2022, RECEIVED MOST RECENT DOSE OF ATEZOLIZUMAB PRIOR TO ADVERSE EVENT ONSET.?ON 11/APR/20
     Route: 041
     Dates: start: 20221230
  2. ADO-TRASTUZUMAB EMTANSINE [Suspect]
     Active Substance: ADO-TRASTUZUMAB EMTANSINE
     Indication: HER2 positive breast cancer
     Dosage: ON 30/DEC/2022, HE RECEIVED MOST RECENT DOSE (320 MG/KG) OF TRASTUZUMAB EMTANSINE PRIOR TO ADVERSE E
     Route: 042
     Dates: start: 20221230
  3. LINEZOLID [Concomitant]
     Active Substance: LINEZOLID
     Indication: Haematological infection
     Dates: start: 20230120, end: 20230129
  4. BISACODYL;SENNOSIDE B [Concomitant]
     Indication: Constipation
     Dates: start: 20230220, end: 20230411
  5. GRANISETRON HYDROCHLORIDE [Concomitant]
     Active Substance: GRANISETRON HYDROCHLORIDE
     Dates: start: 20230410
  6. LACTULOSE [Concomitant]
     Active Substance: LACTULOSE
     Indication: Constipation
     Dates: start: 20230410, end: 20230428
  7. MOXIFLOXACIN [Concomitant]
     Active Substance: MOXIFLOXACIN
     Indication: Haematological infection
     Dates: start: 20230110, end: 20230112
  8. ACETAMINOPHEN [Concomitant]
     Active Substance: ACETAMINOPHEN
     Indication: Pyrexia
     Dates: start: 20230110
  9. PANTOPRAZOLE [Concomitant]
     Active Substance: PANTOPRAZOLE
     Dates: start: 20230426, end: 20230505

REACTIONS (3)
  - Infection [Recovered/Resolved]
  - Infection [Recovered/Resolved]
  - Postoperative wound infection [Recovering/Resolving]

NARRATIVE: CASE EVENT DATE: 20230110
